FAERS Safety Report 8194836-1 (Version None)
Quarter: 2012Q1

REPORT INFORMATION
  Report Type: 
  Country: None (occurrence: None)
  Receive Date: 20120308
  Receipt Date: 20110414
  Transmission Date: 20120608
  Serious: No
  Sender: FDA-Public Use
  Company Number: US-GLAXOSMITHKLINE-A0924824A

PATIENT
  Age: 51 Year
  Sex: Male

DRUGS (14)
  1. CELEXA [Concomitant]
  2. FLOMAX [Concomitant]
  3. FENTANYL [Concomitant]
  4. LIPITOR [Concomitant]
  5. HYDROMORPHONE HCL [Concomitant]
  6. PROVIGIL [Concomitant]
  7. AMBIEN [Concomitant]
  8. PROTONIX [Concomitant]
  9. ACETYLSALICYLIC ACID SRT [Concomitant]
  10. NICORETTE [Suspect]
     Indication: SMOKING CESSATION THERAPY
     Route: 002
  11. PROSCAR [Concomitant]
  12. TRAZODONE HCL [Concomitant]
  13. ANDROGEL [Concomitant]
  14. NORVASC [Concomitant]

REACTIONS (1)
  - NICOTINE DEPENDENCE [None]
